FAERS Safety Report 6011689-8 (Version None)
Quarter: 2008Q4

REPORT INFORMATION
  Report Type: 
  Country: None (occurrence: None)
  Receive Date: 20081218
  Receipt Date: 19861002
  Transmission Date: 20090506
  Serious: Yes (Death)
  Sender: FDA-Public Use
  Company Number: AU-ROCHE-860150254001

PATIENT
  Age: 41 Year
  Sex: Female

DRUGS (2)
  1. INTERFERON ALFA-2A [Suspect]
     Indication: MALIGNANT MELANOMA
     Dosage: REPORTED AS 3 MILLION UNITS DAILY
     Route: 058
     Dates: start: 19860124, end: 19860228
  2. DTIC-DOME [Concomitant]
     Route: 042
     Dates: start: 19860124

REACTIONS (1)
  - DISEASE PROGRESSION [None]
